FAERS Safety Report 18916573 (Version 6)
Quarter: 2021Q4

REPORT INFORMATION
  Report Type: Report from Study
  Country: HR (occurrence: HR)
  Receive Date: 20210219
  Receipt Date: 20211217
  Transmission Date: 20220303
  Serious: Yes (Hospitalization, Other)
  Sender: FDA-Public Use
  Company Number: HR-TEVA-2021-HR-1881311

PATIENT
  Age: 31 Year
  Sex: Female
  Weight: 71 kg

DRUGS (9)
  1. COPAXONE [Suspect]
     Active Substance: GLATIRAMER ACETATE
     Indication: Multiple sclerosis
     Dates: start: 20191104
  2. AMOXICILLIN\CLAVULANIC ACID [Suspect]
     Active Substance: AMOXICILLIN\CLAVULANIC ACID
     Indication: Escherichia infection
     Route: 065
     Dates: end: 20210130
  3. AMOXICILLIN\CLAVULANIC ACID [Suspect]
     Active Substance: AMOXICILLIN\CLAVULANIC ACID
     Indication: Enterococcal infection
  4. EUTHYROX [Concomitant]
     Active Substance: LEVOTHYROXINE SODIUM
     Dosage: 75 MICROGRAM DAILY; ONGOING
     Route: 065
     Dates: start: 2019
  5. OMEGA 3 [Concomitant]
     Active Substance: CAPSAICIN
     Dosage: ONGOING
     Route: 065
  6. VITAMIN D3 [Concomitant]
     Active Substance: CHOLECALCIFEROL
     Dosage: ONGOING
     Route: 065
  7. Folbella [Concomitant]
     Dosage: 5 MILLIGRAM DAILY; NOT ONGOING
  8. PROGESTERONE [Concomitant]
     Active Substance: PROGESTERONE
     Dosage: 800 MILLIGRAM DAILY; NOT ONGOING
  9. ASCORBIC ACID\FERRIC PYROPHOSPHATE [Concomitant]
     Active Substance: ASCORBIC ACID\FERRIC PYROPHOSPHATE
     Dosage: NOT ONGOING

REACTIONS (11)
  - Drug eruption [Recovered/Resolved]
  - Escherichia infection [Unknown]
  - Enterococcal infection [Unknown]
  - Gestational diabetes [Unknown]
  - Dizziness [Recovered/Resolved]
  - Nausea [Recovered/Resolved]
  - COVID-19 [Unknown]
  - Premature delivery [Unknown]
  - Maternal exposure during pregnancy [Unknown]
  - Live birth [Unknown]
  - Maternal exposure during breast feeding [Unknown]

NARRATIVE: CASE EVENT DATE: 20201221
